FAERS Safety Report 12329814 (Version 3)
Quarter: 2016Q2

REPORT INFORMATION
  Report Type: Spontaneous
  Country: FR (occurrence: FR)
  Receive Date: 20160503
  Receipt Date: 20160525
  Transmission Date: 20160815
  Serious: Yes (Other)
  Sender: FDA-Public Use
  Company Number: PHHY2016FR057579

PATIENT
  Age: 59 Year
  Sex: Male
  Weight: 75 kg

DRUGS (1)
  1. GILENYA [Suspect]
     Active Substance: FINGOLIMOD HYDROCHLORIDE
     Indication: RELAPSING-REMITTING MULTIPLE SCLEROSIS
     Dosage: 0.5 MG, QD
     Route: 048
     Dates: start: 20140213

REACTIONS (2)
  - Mucoepidermoid carcinoma [Unknown]
  - Transaminases abnormal [Unknown]

NARRATIVE: CASE EVENT DATE: 20160116
